FAERS Safety Report 23934015 (Version 1)
Quarter: 2024Q2

REPORT INFORMATION
  Report Type: Spontaneous
  Country: GB (occurrence: None)
  Receive Date: 20240603
  Receipt Date: 20240603
  Transmission Date: 20240715
  Serious: Yes (Other)
  Sender: FDA-Public Use
  Company Number: 2024A128818

PATIENT
  Age: 85 Year
  Sex: Male

DRUGS (21)
  1. DAPAGLIFLOZIN [Suspect]
     Active Substance: DAPAGLIFLOZIN
     Dates: start: 20240402
  2. ACTIMORPH [Concomitant]
     Dosage: UP TO 4 TIMES AS DAY
     Dates: start: 20240326, end: 20240423
  3. ALOGLIPTIN [Concomitant]
     Active Substance: ALOGLIPTIN
     Dates: start: 20210122
  4. APIXABAN [Concomitant]
     Active Substance: APIXABAN
     Dates: start: 20240301
  5. ASPIRIN [Concomitant]
     Active Substance: ASPIRIN
     Dosage: MORNING
     Dates: start: 20231114
  6. ATORVASTATIN [Concomitant]
     Active Substance: ATORVASTATIN
  7. FLUTICASONE FUROATE [Concomitant]
     Active Substance: FLUTICASONE FUROATE
     Dosage: IN EACH NOSTRIL
     Dates: start: 20200221
  8. BISOPROLOL [Concomitant]
     Active Substance: BISOPROLOL\BISOPROLOL FUMARATE
     Dates: start: 20231114
  9. CHLORAMPHENICOL [Concomitant]
     Active Substance: CHLORAMPHENICOL
     Dates: start: 20240326, end: 20240402
  10. AMOXICILLIN\CLAVULANATE POTASSIUM [Concomitant]
     Active Substance: AMOXICILLIN\CLAVULANATE POTASSIUM
     Dates: start: 20240415, end: 20240422
  11. CODEINE PHOSPHATE [Concomitant]
     Active Substance: CODEINE PHOSPHATE
     Indication: Pain
     Dosage: TAKE 1-2 UP TO 4 TIMES/DAY
     Dates: start: 20231114
  12. DOXYCYCLINE [Concomitant]
     Active Substance: DOXYCYCLINE\DOXYCYCLINE HYCLATE
     Dosage: RESCUE PACK. TAKE TWO ON THE FIRST DAY, THEN ON...
     Dates: start: 20240405, end: 20240410
  13. NITROGLYCERIN [Concomitant]
     Active Substance: NITROGLYCERIN
     Dates: start: 20230221
  14. HYPROMELLOSES [Concomitant]
     Active Substance: HYPROMELLOSES
     Dates: start: 20230119
  15. METFORMIN [Concomitant]
     Active Substance: METFORMIN HYDROCHLORIDE
     Dosage: FOR 1 WEEK WITH BREAKFAST, THEN
     Dates: start: 20240412
  16. OMEPRAZOLE [Concomitant]
     Active Substance: DONEPEZIL HYDROCHLORIDE\OMEPRAZOLE\OMEPRAZOLE MAGNESIUM
     Dates: start: 20231114
  17. PREDNISOLONE [Concomitant]
     Active Substance: PREDNISOLONE
     Dosage: RESCUE PACK. FOR 5 DAYS. USE AS DIRECTED TO TREAT EXACERBATIONS.
     Dates: start: 20240405, end: 20240410
  18. QUININE SULFATE [Concomitant]
     Active Substance: QUININE SULFATE
     Dosage: NIGHT
     Dates: start: 20231114
  19. RAMIPRIL [Concomitant]
     Active Substance: RAMIPRIL
     Dosage: MORNING
     Dates: start: 20231114
  20. BECLOMETHASONE DIPROPIONATE\FORMOTEROL FUMARATE\GLYCOPYRROLATE [Concomitant]
     Active Substance: BECLOMETHASONE DIPROPIONATE\FORMOTEROL FUMARATE\GLYCOPYRROLATE
     Dosage: VIA SPACER
     Dates: start: 20231026
  21. VENTOLIN [Concomitant]
     Active Substance: ALBUTEROL SULFATE
     Dosage: AT 4 HOURLY INTERVALS
     Dates: start: 20231114

REACTIONS (2)
  - Hallucination [Recovered/Resolved]
  - Dysgeusia [Unknown]
